FAERS Safety Report 6637287-0 (Version None)
Quarter: 2010Q1

REPORT INFORMATION
  Report Type: 
  Country: None (occurrence: None)
  Receive Date: 20100316
  Receipt Date: 20100128
  Transmission Date: 20100710
  Serious: Yes (Other)
  Sender: FDA-Public Use
  Company Number: US-ABBOTT-10P-163-0622838-00

PATIENT
  Age: 45 Year
  Sex: Male

DRUGS (4)
  1. TRILIPIX [Suspect]
     Indication: HYPERCHOLESTEROLAEMIA
     Dates: start: 20091201, end: 20100101
  2. TRILIPIX [Suspect]
     Indication: HYPERTRIGLYCERIDAEMIA
  3. LIPITOR [Suspect]
     Indication: HYPERCHOLESTEROLAEMIA
     Dates: start: 20091201, end: 20100101
  4. LIPITOR [Suspect]
     Indication: HYPERTRIGLYCERIDAEMIA

REACTIONS (1)
  - RHABDOMYOLYSIS [None]
